FAERS Safety Report 8616622-8 (Version None)
Quarter: 2012Q3

REPORT INFORMATION
  Report Type: 
  Country: None (occurrence: None)
  Receive Date: 20120823
  Receipt Date: 20120820
  Transmission Date: 20120928
  Serious: Yes (Other)
  Sender: FDA-Public Use
  Company Number: US-TEVA-355113USA

PATIENT
  Age: 0 Year
  Sex: Male

DRUGS (4)
  1. CALCIUM [Concomitant]
     Route: 064
  2. LITHIUM CARBONATE [Suspect]
     Dosage: 900MG DAILY
     Route: 064
  3. BUPROPION HCL [Suspect]
     Dosage: 300MG
     Route: 064
  4. LEVOTHYROXINE SODIUM [Concomitant]
     Dosage: 50 MICROG
     Route: 064

REACTIONS (2)
  - FEEDING DISORDER NEONATAL [None]
  - HYPOTONIA NEONATAL [None]
